FAERS Safety Report 5204640-1 (Version None)
Quarter: 2007Q1

REPORT INFORMATION
  Report Type: 
  Country: None (occurrence: None)
  Receive Date: 20070110
  Receipt Date: 20060602
  Transmission Date: 20070707
  Serious: Yes (Hospitalization)
  Sender: FDA-Public Use
  Company Number: US-BRISTOL-MYERS SQUIBB COMPANY-13400429

PATIENT
  Age: 9 Year
  Sex: Male
  Weight: 36 kg

DRUGS (5)
  1. ABILIFY [Suspect]
     Indication: ATTENTION DEFICIT/HYPERACTIVITY DISORDER
     Dosage: INTERRUPTED BY CONSUMER'S MOTHER
     Route: 048
     Dates: start: 20050601
  2. VISTARIL [Concomitant]
     Dates: start: 20060512
  3. CLONIDINE [Concomitant]
     Dates: start: 20060411
  4. CONCERTA [Concomitant]
     Dates: start: 20050301
  5. COGENTIN [Concomitant]
     Dates: start: 20060312

REACTIONS (1)
  - TARDIVE DYSKINESIA [None]
